FAERS Safety Report 26010758 (Version 1)
Quarter: 2025Q4

REPORT INFORMATION
  Report Type: Spontaneous
  Country: EU (occurrence: EU)
  Receive Date: 20251107
  Receipt Date: 20251107
  Transmission Date: 20260119
  Serious: Yes (Congenital Anomaly)
  Sender: RANBAXY
  Company Number: EU-AFSSAPS-NT2025000714

PATIENT
  Sex: Female

DRUGS (6)
  1. AMLODIPINE [Suspect]
     Active Substance: AMLODIPINE BESYLATE
     Indication: Hypertension
     Dosage: 10 MILLIGRAM, DAILY, 1-0-0
     Route: 064
  2. ENVARSUS XR [Suspect]
     Active Substance: TACROLIMUS
     Indication: Prophylaxis against graft versus host disease
     Dosage: 7 MILLIGRAM, DAILY, 1-0-0
     Route: 064
  3. PREDNISONE [Suspect]
     Active Substance: PREDNISONE
     Indication: Prophylaxis against graft versus host disease
     Dosage: 10 MILLIGRAM, DAILY, 1-0-0
     Route: 064
  4. ARANESP [Suspect]
     Active Substance: DARBEPOETIN ALFA
     Indication: Anaemia
     Dosage: 40 MCG, 1/WEEK
     Route: 064
  5. PLAQUENIL [Suspect]
     Active Substance: HYDROXYCHLOROQUINE SULFATE
     Indication: Lupus-like syndrome
     Dosage: 200 MILLIGRAM, DAILY, 1-0-1
     Route: 064
  6. NULOJIX [Suspect]
     Active Substance: BELATACEPT
     Indication: Prophylaxis against graft versus host disease
     Dosage: 350 MILLIGRAM, UNK
     Route: 040
     Dates: end: 20250220

REACTIONS (2)
  - Microcephaly [Not Recovered/Not Resolved]
  - Maternal exposure during pregnancy [Recovered/Resolved]

NARRATIVE: CASE EVENT DATE: 20250601
